FAERS Safety Report 11984822 (Version 1)
Quarter: 2016Q1

REPORT INFORMATION
  Report Type: Spontaneous
  Country: US (occurrence: US)
  Receive Date: 20160201
  Receipt Date: 20160201
  Transmission Date: 20160526
  Serious: No
  Sender: FDA-Public Use
  Company Number: US-BAUSCH-BL-2015-023612

PATIENT
  Sex: Female

DRUGS (1)
  1. PROLENSA [Suspect]
     Active Substance: BROMFENAC SODIUM
     Indication: PREOPERATIVE CARE
     Route: 061
     Dates: start: 201509, end: 201509

REACTIONS (2)
  - Eye pain [Recovered/Resolved]
  - Eye irritation [Recovered/Resolved]

NARRATIVE: CASE EVENT DATE: 201509
